FAERS Safety Report 13253042 (Version 1)
Quarter: 2017Q1

REPORT INFORMATION
  Report Type: Spontaneous
  Country: US (occurrence: US)
  Receive Date: 20170220
  Receipt Date: 20170220
  Transmission Date: 20170428
  Serious: Yes (Disabling)
  Sender: FDA-Public Use
  Company Number: US-009507513-1702USA005601

PATIENT

DRUGS (2)
  1. REBETOL [Suspect]
     Active Substance: RIBAVIRIN
     Indication: HEPATITIS C
  2. SOVALDI [Interacting]
     Active Substance: SOFOSBUVIR
     Indication: HEPATITIS C

REACTIONS (10)
  - Cerebral disorder [Unknown]
  - Tooth extraction [Unknown]
  - Stress [Unknown]
  - Drug interaction [Unknown]
  - Pain [Unknown]
  - Nerve injury [Unknown]
  - Vitreous floaters [Unknown]
  - Cardiac disorder [Unknown]
  - Tooth infection [Unknown]
  - Anxiety [Unknown]

NARRATIVE: CASE EVENT DATE: 201609
